FAERS Safety Report 17124548 (Version 2)
Quarter: 2020Q1

REPORT INFORMATION
  Report Type: Spontaneous
  Country: MX (occurrence: MX)
  Receive Date: 20191206
  Receipt Date: 20200228
  Transmission Date: 20200409
  Serious: Yes (Other)
  Sender: FDA-Public Use
  Company Number: MX-BAYER-2019-197636

PATIENT
  Age: 33 Year
  Sex: Female

DRUGS (2)
  1. KETOROLAC [Concomitant]
     Active Substance: KETOROLAC TROMETHAMINE
     Indication: MIGRAINE
     Dosage: UNK UNK, PRN
  2. MIRENA [Suspect]
     Active Substance: LEVONORGESTREL
     Indication: CONTRACEPTION
     Dosage: 20 MCG/24HR CONTINUOUSLY
     Route: 015
     Dates: start: 201601, end: 20191023

REACTIONS (12)
  - Ovarian cyst [Recovered/Resolved]
  - Noninfective oophoritis [Recovered/Resolved]
  - Amenorrhoea [Not Recovered/Not Resolved]
  - Abdominal pain lower [None]
  - Ovarian cyst [Recovered/Resolved]
  - Adnexa uteri pain [Not Recovered/Not Resolved]
  - Abdominal distension [None]
  - Haemorrhagic ovarian cyst [Recovered/Resolved]
  - Pelvic fluid collection [None]
  - Adnexal torsion [None]
  - Uterine mass [None]
  - Device issue [None]

NARRATIVE: CASE EVENT DATE: 201612
